FAERS Safety Report 9587729 (Version 1)
Quarter: 2013Q4

REPORT INFORMATION
  Report Type: Spontaneous
  Country: US (occurrence: US)
  Receive Date: 20131003
  Receipt Date: 20131003
  Transmission Date: 20140711
  Serious: Yes (Death)
  Sender: FDA-Public Use
  Company Number: US-COVIDIEN/TYCO HEALTHCARE/MALLINCKRODT-T201300881

PATIENT
  Age: 75 Year
  Sex: Male
  Weight: 68.27 kg

DRUGS (2)
  1. HYDROMORPHONE [Suspect]
     Indication: PROCEDURAL PAIN
     Dosage: 2 MG Q 4-6 HOURS PRN
     Route: 048
     Dates: start: 20130128, end: 20130215
  2. DILANTIN /00017401/ [Suspect]
     Indication: EPILEPSY
     Dosage: 300 MG TID
     Route: 048

REACTIONS (1)
  - Drug level decreased [Recovered/Resolved]
